FAERS Safety Report 5090067-2 (Version None)
Quarter: 2006Q3

REPORT INFORMATION
  Report Type: 
  Country: None (occurrence: None)
  Receive Date: 20060801
  Receipt Date: 20060117
  Transmission Date: 20061208
  Serious: Yes (Hospitalization)
  Sender: FDA-Public Use
  Company Number: OMPQ-PR-0601S-0030

PATIENT
  Sex: Female

DRUGS (1)
  1. OMNIPAQUE 140 [Suspect]
     Indication: MITRAL VALVE PROLAPSE
     Dosage: 100 ML, SINGLE DOSE, I.A.
     Route: 013
     Dates: start: 20060101, end: 20060101

REACTIONS (1)
  - HYPERSENSITIVITY [None]
